FAERS Safety Report 5532881-2 (Version None)
Quarter: 2007Q4

REPORT INFORMATION
  Report Type: 
  Country: None (occurrence: None)
  Receive Date: 20071129
  Receipt Date: 20071129
  Transmission Date: 20080405
  Serious: No
  Sender: FDA-Public Use
  Company Number: None

PATIENT
  Age: 50 Year
  Sex: Male

DRUGS (1)
  1. TRAMADOL HCL [Suspect]
     Dosage: 50MG TID PO
     Route: 048
     Dates: start: 20071121, end: 20071126

REACTIONS (2)
  - NAUSEA [None]
  - VOMITING [None]
